FAERS Safety Report 10048316 (Version 1)
Quarter: 2014Q1

REPORT INFORMATION
  Report Type: Spontaneous
  Country: US (occurrence: US)
  Receive Date: 20140331
  Receipt Date: 20140331
  Transmission Date: 20141002
  Serious: Yes (Hospitalization)
  Sender: FDA-Public Use
  Company Number: US-GLAXOSMITHKLINE-A1066522A

PATIENT
  Age: 78 Year
  Sex: Female

DRUGS (5)
  1. ADVAIR [Suspect]
     Indication: CHRONIC OBSTRUCTIVE PULMONARY DISEASE
     Route: 065
     Dates: start: 2010
  2. BENAZEPRIL [Concomitant]
  3. SERTRALINE [Concomitant]
  4. PRAVASTATIN [Concomitant]
  5. LEVOTHYROXINE [Concomitant]

REACTIONS (1)
  - Hip arthroplasty [Recovered/Resolved]
